FAERS Safety Report 9352451 (Version 1)
Quarter: 2013Q2

REPORT INFORMATION
  Report Type: Spontaneous
  Country: FR (occurrence: FR)
  Receive Date: 20130617
  Receipt Date: 20130617
  Transmission Date: 20140414
  Serious: Yes (Hospitalization)
  Sender: FDA-Public Use
  Company Number: FR-BAXTER-2013BAX021791

PATIENT
  Age: 54 Year
  Sex: Male

DRUGS (14)
  1. ENDOXAN 2000 MG, LYOPHILISAT POUR SOLUTION INJECTABLE [Suspect]
     Indication: PLASMA CELL MYELOMA
     Route: 042
     Dates: start: 20130301
  2. ENDOXAN 2000 MG, LYOPHILISAT POUR SOLUTION INJECTABLE [Suspect]
     Route: 042
     Dates: start: 20130326
  3. VELCADE [Suspect]
     Indication: PLASMA CELL MYELOMA
     Route: 042
     Dates: start: 20130301
  4. VELCADE [Suspect]
     Route: 042
     Dates: start: 20130304
  5. VELCADE [Suspect]
     Route: 042
     Dates: start: 20130308
  6. VELCADE [Suspect]
     Route: 042
     Dates: start: 20130311
  7. VELCADE [Suspect]
     Route: 042
     Dates: start: 20130326
  8. VELCADE [Suspect]
     Route: 042
     Dates: start: 20130329
  9. VELCADE [Suspect]
     Route: 042
     Dates: start: 20130402
  10. DEXAMETHASONE [Concomitant]
     Indication: PLASMA CELL MYELOMA
     Route: 065
     Dates: start: 20130301
  11. DEXAMETHASONE [Concomitant]
     Route: 065
     Dates: start: 20130302
  12. DEXAMETHASONE [Concomitant]
     Route: 065
     Dates: start: 20130304
  13. DEXAMETHASONE [Concomitant]
     Route: 065
     Dates: start: 20130308
  14. DEXAMETHASONE [Concomitant]
     Route: 065
     Dates: start: 20130303

REACTIONS (3)
  - Mesenteric vein thrombosis [Recovering/Resolving]
  - Ileus paralytic [Recovering/Resolving]
  - Ulcer haemorrhage [Recovering/Resolving]
